FAERS Safety Report 7920855-3 (Version None)
Quarter: 2011Q4

REPORT INFORMATION
  Report Type: 
  Country: None (occurrence: None)
  Receive Date: 20111117
  Receipt Date: 20110824
  Transmission Date: 20120403
  Serious: No
  Sender: FDA-Public Use
  Company Number: US-GLAXOSMITHKLINE-A0942174A

PATIENT
  Age: 57 Year
  Sex: Male

DRUGS (9)
  1. VOTRIENT [Suspect]
     Indication: RENAL CANCER METASTATIC
     Dosage: 800MG PER DAY
     Route: 048
     Dates: start: 20110812
  2. PRAVASTATIN [Concomitant]
  3. METOPROLOL TARTRATE [Concomitant]
     Dosage: 25MG TWICE PER DAY
     Route: 065
  4. LISINOPRIL [Concomitant]
  5. PLAVIX [Concomitant]
  6. ACTOS [Concomitant]
  7. METFORMIN HCL [Concomitant]
  8. ASPIRIN [Concomitant]
  9. GLIPIZIDE [Concomitant]

REACTIONS (6)
  - NAUSEA [None]
  - BLOOD PRESSURE INCREASED [None]
  - RENAL FUNCTION TEST ABNORMAL [None]
  - VOMITING [None]
  - FATIGUE [None]
  - CHEST PAIN [None]
